FAERS Safety Report 13764770 (Version 2)
Quarter: 2018Q2

REPORT INFORMATION
  Report Type: Report from Study
  Country: CA (occurrence: CA)
  Receive Date: 20170718
  Receipt Date: 20180613
  Transmission Date: 20180711
  Serious: Yes (Hospitalization, Other)
  Sender: FDA-Public Use
  Company Number: CA-AMGEN-CANSL2017105549

PATIENT
  Age: 68 Year
  Sex: Female

DRUGS (1)
  1. PROLIA [Suspect]
     Active Substance: DENOSUMAB
     Indication: PRODUCT USED FOR UNKNOWN INDICATION
     Dosage: UNK
     Route: 065
     Dates: start: 20150612

REACTIONS (6)
  - Lung disorder [Unknown]
  - Back pain [Not Recovered/Not Resolved]
  - Pneumonia [Unknown]
  - Malaise [Unknown]
  - Asthma [Unknown]
  - Asthenia [Unknown]

NARRATIVE: CASE EVENT DATE: 201706
